FAERS Safety Report 11430381 (Version 1)
Quarter: 2015Q3

REPORT INFORMATION
  Report Type: Spontaneous
  Country: US (occurrence: US)
  Receive Date: 20150828
  Receipt Date: 20150828
  Transmission Date: 20151125
  Serious: No
  Sender: FDA-Public Use
  Company Number: PHEH2015US008015

PATIENT
  Sex: Female

DRUGS (1)
  1. RECLAST [Suspect]
     Active Substance: ZOLEDRONIC ACID
     Indication: PRODUCT USED FOR UNKNOWN INDICATION
     Route: 065

REACTIONS (11)
  - Dysstasia [Unknown]
  - Muscle spasms [Unknown]
  - Pain [Unknown]
  - Arthralgia [Unknown]
  - Pain in extremity [Unknown]
  - Weight increased [Unknown]
  - Thyroid disorder [Unknown]
  - Malaise [Unknown]
  - Pyrexia [Unknown]
  - Fatigue [Unknown]
  - Hypertension [Unknown]
